FAERS Safety Report 5720246-X (Version None)
Quarter: 2008Q2

REPORT INFORMATION
  Report Type: 
  Country: None (occurrence: None)
  Receive Date: 20080428
  Receipt Date: 20080416
  Transmission Date: 20081010
  Serious: Yes (Death, Life-Threatening, Hospitalization)
  Sender: FDA-Public Use
  Company Number: KR-GILEAD-E2B_00000062

PATIENT
  Sex: Female

DRUGS (5)
  1. HEPSERA [Suspect]
     Indication: HEPATITIS B
     Dosage: 10MG PER DAY
     Dates: start: 20070220
  2. LASIX [Concomitant]
     Indication: ASCITES
     Dosage: 40MG PER DAY
     Route: 048
     Dates: start: 20050225
  3. ALDACTONE [Concomitant]
     Dosage: 25MG PER DAY
     Route: 048
     Dates: start: 20050225
  4. GANATON [Concomitant]
     Dosage: 50MG TWICE PER DAY
     Route: 048
     Dates: start: 20030320
  5. URSODESOXYCHOLIC ACID [Concomitant]
     Dosage: 200MG THREE TIMES PER DAY
     Route: 048
     Dates: start: 20030320

REACTIONS (5)
  - COMA HEPATIC [None]
  - HEPATORENAL SYNDROME [None]
  - PERITONITIS BACTERIAL [None]
  - RENAL FAILURE ACUTE [None]
  - SEPSIS [None]
